FAERS Safety Report 6137334-9 (Version None)
Quarter: 2009Q1

REPORT INFORMATION
  Report Type: 
  Country: None (occurrence: None)
  Receive Date: 20090330
  Receipt Date: 20090325
  Transmission Date: 20090719
  Serious: Yes (Hospitalization, Other)
  Sender: FDA-Public Use
  Company Number: US-B.I. PHARMACEUTICALS,INC./RIDGEFIELD-2008-BP-18515BP

PATIENT
  Age: 73 Year
  Sex: Male
  Weight: 93 kg

DRUGS (7)
  1. FLOMAX [Suspect]
     Indication: BENIGN PROSTATIC HYPERPLASIA
     Dosage: .4MG
     Route: 048
     Dates: start: 20080728, end: 20090117
  2. FLOMAX [Suspect]
     Indication: BRACHYTHERAPY
  3. FLOMAX [Suspect]
     Indication: PROSTATOMEGALY
  4. VYTORIN [Concomitant]
     Indication: BLOOD CHOLESTEROL INCREASED
  5. VYTORIN [Concomitant]
     Indication: HYPERLIPIDAEMIA
  6. SYNTHROID [Concomitant]
     Indication: HYPOTHYROIDISM
  7. ASPIRIN [Concomitant]

REACTIONS (3)
  - CHEST PAIN [None]
  - PROSTATE CANCER [None]
  - URTICARIA [None]
